FAERS Safety Report 8399951-5 (Version None)
Quarter: 2012Q2

REPORT INFORMATION
  Report Type: 
  Country: None (occurrence: None)
  Receive Date: 20120531
  Receipt Date: 20120522
  Transmission Date: 20120825
  Serious: Yes (Hospitalization)
  Sender: FDA-Public Use
  Company Number: FR-JNJFOC-20120407351

PATIENT
  Sex: Male
  Weight: 60 kg

DRUGS (2)
  1. XARELTO [Suspect]
     Indication: POSTOPERATIVE CARE
     Route: 048
     Dates: start: 20111122, end: 20111220
  2. XARELTO [Suspect]
     Indication: HIP ARTHROPLASTY
     Route: 048
     Dates: start: 20111122, end: 20111220

REACTIONS (2)
  - DRUG INEFFECTIVE [None]
  - PULMONARY EMBOLISM [None]
